FAERS Safety Report 7776678 (Version 4)
Quarter: 2012Q4

REPORT INFORMATION
  Report Type: 
  Country: US (occurrence: US)
  Receive Date: 20110127
  Receipt Date: 20120924
  Transmission Date: 20130627
  Serious: No
  Sender: FDA-Public Use
  Company Number: US-BAYER-2011-006379

PATIENT
  Sex: Female

DRUGS (1)
  1. BEYAZ [Suspect]
     Route: 048

REACTIONS (1)
  - Pregnancy [Not Recovered/Not Resolved]
